FAERS Safety Report 7559816-5 (Version None)
Quarter: 2011Q2

REPORT INFORMATION
  Report Type: 
  Country: None (occurrence: None)
  Receive Date: 20110621
  Receipt Date: 20110607
  Transmission Date: 20111010
  Serious: Yes (Hospitalization)
  Sender: FDA-Public Use
  Company Number: US-ROCHE-784059

PATIENT
  Sex: Female

DRUGS (5)
  1. CARBOPLATIN [Suspect]
     Indication: BREAST CANCER
     Dosage: CYCLE: 19 WEEKS, DOSE OF AUC 6 OVER 30 MIN ON DAY 1 OF WKS 1, 4, 7 AND 10
     Route: 042
     Dates: start: 20101113
  2. DOXORUBICIN HCL [Suspect]
     Indication: BREAST CANCER
     Dosage: CYCLE: 19 WEEKS; FREQUENCY: OVER 5 - 10 MIN ON DAY 1 OF WEEKS 13, 15, 17 AND 19
     Route: 042
     Dates: start: 20101113
  3. BEVACIZUMAB [Suspect]
     Indication: BREAST CANCER
     Dosage: CYCLE: 19 WEEKS, OVER 30 - 90 MIN ON DAY 1 OF WKS 1, 3, 5, 7, 9, 11, 13, 15 AND 17
     Route: 042
     Dates: start: 20101113
  4. PACLITAXEL [Suspect]
     Indication: BREAST CANCER
     Dosage: CYCLE: 19 WEEKS; FREQUENCY: OVER 1 HOUR ON DAY 1 OF WEEKS 1 - 12
     Route: 042
     Dates: start: 20101113
  5. CYCLOPHOSPHAMIDE [Suspect]
     Indication: BREAST CANCER
     Dosage: CYCLE: 19 WEEKS; FREQUENCY: OVER 5 - 30 MIN ON DAY 1 OF WEEKS 13, 15, 17 AND 19
     Route: 042
     Dates: start: 20101113

REACTIONS (3)
  - UPPER RESPIRATORY TRACT INFECTION [None]
  - SKIN INFECTION [None]
  - CYSTITIS [None]
